FAERS Safety Report 6252752-6 (Version None)
Quarter: 2009Q2

REPORT INFORMATION
  Report Type: 
  Country: None (occurrence: None)
  Receive Date: 20090629
  Receipt Date: 20090629
  Transmission Date: 20091009
  Serious: Yes (Disabling, Other)
  Sender: FDA-Public Use
  Company Number: None

PATIENT
  Age: 45 Year
  Sex: Female
  Weight: 60.1016 kg

DRUGS (1)
  1. ZICAM NASAL GEL 0.50FL OZ/15ML ZICAM [Suspect]
     Dosage: NASAL
     Route: 045
     Dates: start: 20081230, end: 20081230

REACTIONS (10)
  - AGEUSIA [None]
  - ALOPECIA [None]
  - ANOSMIA [None]
  - BURNING SENSATION [None]
  - DYSGEUSIA [None]
  - MALNUTRITION [None]
  - NASAL DISCOMFORT [None]
  - PAROSMIA [None]
  - SKIN DISORDER [None]
  - WEIGHT DECREASED [None]
